FAERS Safety Report 16562450 (Version 1)
Quarter: 2019Q3

REPORT INFORMATION
  Report Type: Spontaneous
  Country: US (occurrence: US)
  Receive Date: 20190711
  Receipt Date: 20190711
  Transmission Date: 20191004
  Serious: No
  Sender: FDA-Public Use
  Company Number: US-ACTELION-A-US2018-177123

PATIENT
  Age: 22 Year
  Sex: Male
  Weight: 44.44 kg

DRUGS (3)
  1. ADCIRCA [Concomitant]
     Active Substance: TADALAFIL
  2. TRACLEER [Suspect]
     Active Substance: BOSENTAN
     Indication: PULMONARY ARTERIAL HYPERTENSION
     Dosage: 125 MG, BID
     Route: 048
  3. LETAIRIS [Concomitant]
     Active Substance: AMBRISENTAN

REACTIONS (4)
  - Respiratory tract infection [Unknown]
  - Cough [Unknown]
  - Sluggishness [Unknown]
  - Product dose omission [Unknown]

NARRATIVE: CASE EVENT DATE: 20180729
